FAERS Safety Report 24862338 (Version 1)
Quarter: 2025Q1

REPORT INFORMATION
  Report Type: Spontaneous
  Country: US (occurrence: US)
  Receive Date: 20250120
  Receipt Date: 20250120
  Transmission Date: 20250409
  Serious: No
  Sender: PFIZER
  Company Number: US-PFIZER INC-PV202500007025

PATIENT
  Age: 44 Year
  Sex: Male

DRUGS (47)
  1. ZYVOX [Suspect]
     Active Substance: LINEZOLID
     Indication: Anti-infective therapy
     Dosage: 600 MG, DAILY
     Route: 048
     Dates: start: 20241001, end: 20250103
  2. ZYVOX [Suspect]
     Active Substance: LINEZOLID
     Indication: Atypical mycobacterial lower respiratory tract infection
  3. ACETAMINOPHEN [Concomitant]
     Active Substance: ACETAMINOPHEN
     Route: 048
  4. ACETAMINOPHEN\HYDROCODONE [Concomitant]
     Active Substance: ACETAMINOPHEN\HYDROCODONE
     Indication: Pain
     Route: 048
  5. ALBUTEROL SULFATE [Concomitant]
     Active Substance: ALBUTEROL SULFATE
     Indication: Respiratory therapy
  6. ALBUTEROL SULFATE [Concomitant]
     Active Substance: ALBUTEROL SULFATE
     Indication: Chronic obstructive pulmonary disease
  7. ALPRAZOLAM [Concomitant]
     Active Substance: ALPRAZOLAM
     Indication: Anxiety
     Route: 048
  8. AMIKACIN [Concomitant]
     Active Substance: AMIKACIN
     Indication: Atypical mycobacterial lower respiratory tract infection
     Dates: start: 20240904, end: 20240925
  9. AMIKACIN [Concomitant]
     Active Substance: AMIKACIN
     Dates: start: 20240927, end: 20241008
  10. AMIKACIN [Concomitant]
     Active Substance: AMIKACIN
     Dates: start: 20241009
  11. AMIKACIN [Concomitant]
     Active Substance: AMIKACIN
  12. AMIKACIN [Concomitant]
     Active Substance: AMIKACIN
  13. AMOXICILLIN [Concomitant]
     Active Substance: AMOXICILLIN
     Indication: Sinusitis bacterial
     Dosage: 2 DF, 3X/DAY
     Route: 048
  14. AMOXICILLIN [Concomitant]
     Active Substance: AMOXICILLIN
     Indication: Helicobacter infection
  15. AZITHROMYCIN [Concomitant]
     Active Substance: AZITHROMYCIN
     Indication: Atypical mycobacterial lower respiratory tract infection
     Route: 048
     Dates: start: 20240902
  16. AZITHROMYCIN [Concomitant]
     Active Substance: AZITHROMYCIN
     Route: 048
  17. BISACODYL [Concomitant]
     Active Substance: BISACODYL
  18. BREO ELLIPTA [Concomitant]
     Active Substance: FLUTICASONE FUROATE\VILANTEROL TRIFENATATE
     Indication: Rhinitis
     Dosage: 100UG-25UG/INHALATION POWDER, 1 INHALATION 1X/DAY
     Route: 048
  19. BUDESONIDE [Concomitant]
     Active Substance: BUDESONIDE
     Indication: Chronic obstructive pulmonary disease
     Dosage: 0.5 MG/2 ML INHALATION SUSPENSION, 2 ML NEBULIZE 2X/DAY
  20. BUDESONIDE [Concomitant]
     Active Substance: BUDESONIDE
     Indication: Rhinitis
     Dosage: 32 UG/INHALATION, 1 SPRAY 2X/DAY
     Route: 045
  21. ALBUTEROL\BUDESONIDE [Concomitant]
     Active Substance: ALBUTEROL\BUDESONIDE
     Indication: Chronic obstructive pulmonary disease
     Dosage: INHALATION AEROSOL 90 UG-80 UG/INHALATION, 2 INHALATION, 2X/DAY
  22. CALCIUM CARBONATE [Concomitant]
     Active Substance: CALCIUM CARBONATE
  23. ENOXAPARIN [Concomitant]
     Active Substance: ENOXAPARIN
     Dosage: 40 MG 0.4 ML, 1X/DAY
     Route: 058
  24. FAMOTIDINE [Concomitant]
     Active Substance: FAMOTIDINE
     Indication: Gastrooesophageal reflux disease
     Route: 048
  25. FAMOTIDINE [Concomitant]
     Active Substance: FAMOTIDINE
     Route: 048
  26. FLUTICASONE [Concomitant]
     Active Substance: FLUTICASONE
     Dosage: 2 SPRAY, 1X/DAY
     Route: 045
  27. HIZENTRA [Concomitant]
     Active Substance: HUMAN IMMUNOGLOBULIN G
     Indication: Hypogammaglobulinaemia
     Dosage: 20 G, EVERY MONDAY
     Route: 058
  28. ALBUTEROL\IPRATROPIUM [Concomitant]
     Active Substance: ALBUTEROL\IPRATROPIUM
     Indication: Wheezing
  29. ALBUTEROL\IPRATROPIUM [Concomitant]
     Active Substance: ALBUTEROL\IPRATROPIUM
     Indication: Dyspnoea
  30. LEVOFLOXACIN [Concomitant]
     Active Substance: LEVOFLOXACIN
     Indication: Sinusitis bacterial
     Dosage: 1 DF, 1X/DAY
     Route: 048
  31. LEVOFLOXACIN [Concomitant]
     Active Substance: LEVOFLOXACIN
     Indication: Helicobacter infection
  32. MELATONIN [Concomitant]
     Active Substance: MELATONIN
  33. MIRALAX [Concomitant]
     Active Substance: POLYETHYLENE GLYCOL 3350
     Route: 048
  34. NALOXONE [Concomitant]
     Active Substance: NALOXONE
     Indication: Reversal of opiate activity
     Route: 045
  35. NALOXONE [Concomitant]
     Active Substance: NALOXONE
     Indication: Reversal of opiate activity
  36. NYSTATIN [Concomitant]
     Active Substance: NYSTATIN
     Indication: Candida infection
     Dosage: 5 ML, FOUR TIMES A DAY FOR 7 DAYS, SWISH AND SWALLOW
     Route: 048
  37. ONDANSETRON [Concomitant]
     Active Substance: ONDANSETRON
     Route: 048
  38. ONDANSETRON [Concomitant]
     Active Substance: ONDANSETRON
  39. OXYCODONE [Concomitant]
     Active Substance: OXYCODONE
     Indication: Pain
     Route: 048
  40. PANTOPRAZOLE [Concomitant]
     Active Substance: PANTOPRAZOLE
     Indication: Gastrooesophageal reflux disease
     Dosage: 1 DF, 1X/DAY
     Route: 048
  41. REFRESH PLUS [Concomitant]
     Active Substance: CARBOXYMETHYLCELLULOSE SODIUM
  42. SENNOSIDES [Concomitant]
     Active Substance: SENNOSIDES
     Route: 048
  43. SIMETHICONE (DIMETHICONE) [Concomitant]
     Active Substance: DIMETHICONE
     Route: 048
  44. SODIUM CHLORIDE [Concomitant]
     Active Substance: SODIUM CHLORIDE
     Route: 045
  45. SODIUM CHLORIDE [Concomitant]
     Active Substance: SODIUM CHLORIDE
     Dosage: 10 ML, 2X/DAY IV FLUSH
  46. SUCRALFATE [Concomitant]
     Active Substance: SUCRALFATE
     Indication: Gastrooesophageal reflux disease
     Dosage: 1 DF, 3X/DAY
     Route: 048
  47. VENTOLIN HFA [Concomitant]
     Active Substance: ALBUTEROL SULFATE

REACTIONS (4)
  - Anaemia [Unknown]
  - Eosinophil count increased [Unknown]
  - Nausea [Unknown]
  - Off label use [Unknown]

NARRATIVE: CASE EVENT DATE: 20241001
